FAERS Safety Report 10874897 (Version 1)
Quarter: 2015Q1

REPORT INFORMATION
  Report Type: Spontaneous
  Country: US (occurrence: US)
  Receive Date: 20150227
  Receipt Date: 20150227
  Transmission Date: 20150721
  Serious: No
  Sender: FDA-Public Use
  Company Number: US-BAYER-2015-028031

PATIENT
  Age: 51 Year
  Sex: Female

DRUGS (1)
  1. GADAVIST [Suspect]
     Active Substance: GADOBUTROL
     Indication: NUCLEAR MAGNETIC RESONANCE IMAGING
     Dosage: 9 ML, ONCE
     Route: 042
     Dates: start: 20150220, end: 20150220

REACTIONS (4)
  - Cough [None]
  - Dysphagia [None]
  - Dyspnoea [None]
  - Burning sensation [None]

NARRATIVE: CASE EVENT DATE: 20150220
